FAERS Safety Report 8270689-8 (Version None)
Quarter: 2012Q2

REPORT INFORMATION
  Report Type: 
  Country: None (occurrence: None)
  Receive Date: 20120410
  Receipt Date: 20111222
  Transmission Date: 20120825
  Serious: Yes (Hospitalization, Other)
  Sender: FDA-Public Use
  Company Number: US-ROCHE-1019935

PATIENT
  Sex: Female

DRUGS (13)
  1. PLAQUENIL [Concomitant]
  2. PEGASYS [Suspect]
     Indication: HEPATITIS C
     Route: 058
     Dates: start: 20110909
  3. LAXATIVE NOS [Suspect]
     Indication: PRODUCT USED FOR UNKNOWN INDICATION
  4. LODINE [Concomitant]
  5. PRILOSEC [Concomitant]
  6. VICODIN [Concomitant]
     Dosage: HYDROCODONE BITARTRATE:5 MG, PARACETAMOL:500 MG
  7. RIBAVIRIN [Suspect]
     Indication: HEPATITIS C
     Dates: start: 20110909
  8. LISINOPRIL [Concomitant]
     Dosage: PRINIVIL,ZESTRIL
  9. PREDNISONE TAB [Concomitant]
  10. ATENOLOL [Concomitant]
  11. FIORICET [Concomitant]
     Dosage: ACETAMINOPHEN:325 MG,BUTALBITAL:50 MG, CAFFEINE:40 MG
  12. ACTONEL [Concomitant]
  13. GLY-OXIDE [Concomitant]

REACTIONS (6)
  - OVERDOSE [None]
  - TRANSIENT ISCHAEMIC ATTACK [None]
  - PETIT MAL EPILEPSY [None]
  - DEPRESSION [None]
  - APHTHOUS STOMATITIS [None]
  - VITAMIN D DECREASED [None]
